FAERS Safety Report 24716735 (Version 1)
Quarter: 2024Q4

REPORT INFORMATION
  Report Type: Spontaneous
  Country: DE (occurrence: DE)
  Receive Date: 20241210
  Receipt Date: 20241210
  Transmission Date: 20250115
  Serious: Yes (Life-Threatening, Hospitalization)
  Sender: MYLAN
  Company Number: DE-MYLANLABS-2024M1109554

PATIENT
  Age: 41 Year
  Sex: Male

DRUGS (10)
  1. AMIODARONE [Suspect]
     Active Substance: AMIODARONE
     Indication: Ventricular fibrillation
     Dosage: UNK
     Route: 042
  2. AMIODARONE [Suspect]
     Active Substance: AMIODARONE
     Indication: Arrhythmic storm
  3. LIDOCAINE [Suspect]
     Active Substance: LIDOCAINE
     Indication: Ventricular fibrillation
     Dosage: UNK
     Route: 042
  4. LIDOCAINE [Suspect]
     Active Substance: LIDOCAINE
     Indication: Arrhythmic storm
  5. POTASSIUM [Suspect]
     Active Substance: POTASSIUM
     Indication: Ventricular fibrillation
     Dosage: UNK
     Route: 065
  6. POTASSIUM [Suspect]
     Active Substance: POTASSIUM
     Indication: Arrhythmic storm
  7. MAGNESIUM [Suspect]
     Active Substance: MAGNESIUM
     Indication: Ventricular fibrillation
     Dosage: UNK
     Route: 065
  8. MAGNESIUM [Suspect]
     Active Substance: MAGNESIUM
     Indication: Arrhythmic storm
  9. MIDAZOLAM [Suspect]
     Active Substance: MIDAZOLAM
     Indication: Sedative therapy
     Dosage: UNK
     Route: 065
  10. PROPOFOL [Concomitant]
     Active Substance: PROPOFOL
     Indication: Sedative therapy
     Dosage: UNK
     Route: 065

REACTIONS (1)
  - Drug ineffective [Unknown]
